FAERS Safety Report 9575582 (Version 1)
Quarter: 2013Q4

REPORT INFORMATION
  Report Type: Spontaneous
  Country: US (occurrence: US)
  Receive Date: 20131001
  Receipt Date: 20131001
  Transmission Date: 20140711
  Serious: No
  Sender: FDA-Public Use
  Company Number: US-AMGEN-USASP2012083833

PATIENT
  Age: 50 Year
  Sex: Female
  Weight: 90.7 kg

DRUGS (5)
  1. ENBREL [Suspect]
     Indication: PSORIASIS
     Dosage: 50 MG, 2 TIMES/WK
     Route: 058
  2. SYNTHROID [Concomitant]
     Dosage: 88 MCG, UNK
  3. METFORMIN [Concomitant]
     Dosage: 1000 MG, UNK
  4. SIMCOR                             /00848101/ [Concomitant]
     Dosage: 750-20MG
  5. ASPIRIN [Concomitant]
     Dosage: 325 MG, UNK

REACTIONS (2)
  - Lower respiratory tract infection [Unknown]
  - Nasopharyngitis [Unknown]
